FAERS Safety Report 5307060-4 (Version None)
Quarter: 2007Q2

REPORT INFORMATION
  Report Type: 
  Country: None (occurrence: None)
  Receive Date: 20070425
  Receipt Date: 20070413
  Transmission Date: 20071010
  Serious: Yes (Hospitalization)
  Sender: FDA-Public Use
  Company Number: PHEH2007US05325

PATIENT

DRUGS (1)
  1. TRILEPTAL [Suspect]

REACTIONS (2)
  - ACCIDENTAL EXPOSURE [None]
  - CONVULSION [None]
